FAERS Safety Report 12742087 (Version 1)
Quarter: 2016Q3

REPORT INFORMATION
  Report Type: Spontaneous
  Country: US (occurrence: US)
  Receive Date: 20160913
  Receipt Date: 20160913
  Transmission Date: 20161109
  Serious: Yes (Other)
  Sender: FDA-Public Use
  Company Number: None

PATIENT
  Age: 48 Year
  Sex: Male
  Weight: 91.63 kg

DRUGS (1)
  1. XOLAIR [Suspect]
     Active Substance: OMALIZUMAB
     Indication: CHRONIC SPONTANEOUS URTICARIA
     Dosage: 300 MG EVERY 4 WEEKS IM
     Route: 030
     Dates: start: 20150415, end: 20160906

REACTIONS (2)
  - Cystitis noninfective [None]
  - Blood urine present [None]

NARRATIVE: CASE EVENT DATE: 20160705
